FAERS Safety Report 8438816 (Version 6)
Quarter: 2013Q4

REPORT INFORMATION
  Report Type: Report from Study
  Country: FR (occurrence: FR)
  Receive Date: 20120302
  Receipt Date: 20131008
  Transmission Date: 20140711
  Serious: Yes (Hospitalization)
  Sender: FDA-Public Use
  Company Number: FR-TEVA-325097USA

PATIENT
  Age: 78 Year
  Sex: Female
  Weight: 65.5 kg

DRUGS (9)
  1. TREANDA [Suspect]
     Dosage: 116 MILLIGRAM DAILY;
     Route: 042
     Dates: start: 20120207
  2. RITUXIMAB [Suspect]
     Dosage: 619 MILLIGRAM DAILY;
     Route: 042
     Dates: start: 20120207
  3. BACTRIM [Concomitant]
     Dates: start: 20120207, end: 20120312
  4. VALACICLOVIR [Concomitant]
     Dates: start: 20120207, end: 20120830
  5. EPOETIN BETA [Concomitant]
     Dates: start: 20120207, end: 20120403
  6. PEGFILGRASTIM [Concomitant]
     Dates: start: 20120209, end: 20120504
  7. VALSARTAN [Concomitant]
     Dates: start: 201110
  8. FLECAINIDE ACETATE [Concomitant]
     Dates: start: 2011
  9. KARDEGIC [Concomitant]
     Dates: start: 2011

REACTIONS (1)
  - Pancytopenia [Recovered/Resolved with Sequelae]
